FAERS Safety Report 7178959-1 (Version None)
Quarter: 2010Q4

REPORT INFORMATION
  Report Type: 
  Country: None (occurrence: None)
  Receive Date: 20101217
  Receipt Date: 20101217
  Transmission Date: 20110411
  Serious: Yes (Hospitalization)
  Sender: FDA-Public Use
  Company Number: None

PATIENT
  Sex: Male
  Weight: 42 kg

DRUGS (4)
  1. DOXORUBICIN HYDROCHLORIDE [Suspect]
     Dosage: 212 MG
  2. LEUCOVORIN CALCIUM [Suspect]
     Dosage: 60 MG
  3. METHOTREXATE [Suspect]
     Dosage: 68 MG
  4. CISPLATIN [Suspect]
     Dosage: 336 MG

REACTIONS (2)
  - ACUTE MYELOID LEUKAEMIA [None]
  - METASTASIS [None]
